FAERS Safety Report 8437223-0 (Version None)
Quarter: 2012Q2

REPORT INFORMATION
  Report Type: 
  Country: None (occurrence: None)
  Receive Date: 20120614
  Receipt Date: 20120227
  Transmission Date: 20120825
  Serious: No
  Sender: FDA-Public Use
  Company Number: US-AMGEN-USASP2012012614

PATIENT
  Age: 73 Year
  Sex: Female

DRUGS (11)
  1. ASPIRIN [Concomitant]
  2. MULTIVITAMIN                       /00097801/ [Concomitant]
     Dosage: UNK
  3. PROLIA [Suspect]
     Indication: OSTEOPOROSIS POSTMENOPAUSAL
     Dosage: 60 MG, Q6MO
     Dates: start: 20110801
  4. TEKTURNA HCT [Concomitant]
     Dosage: 300 MG, UNK
  5. CINNAMON                           /01647501/ [Concomitant]
     Dosage: UNK
  6. STOOL SOFTENER [Concomitant]
  7. ESTRACE [Concomitant]
  8. MAGNESIUM [Concomitant]
     Dosage: UNK
  9. AMLODIPINE [Concomitant]
  10. CITRACAL PLUS [Concomitant]
     Dosage: UNK
  11. FISH OIL [Concomitant]

REACTIONS (2)
  - BREAST PAIN [None]
  - NIPPLE PAIN [None]
